FAERS Safety Report 5681788-9 (Version None)
Quarter: 2008Q1

REPORT INFORMATION
  Report Type: 
  Country: None (occurrence: None)
  Receive Date: 20080327
  Receipt Date: 20070312
  Transmission Date: 20080703
  Serious: No
  Sender: FDA-Public Use
  Company Number: US-BAYER-US-2007-008923

PATIENT
  Age: 41 Year
  Sex: Female
  Weight: 88 kg

DRUGS (1)
  1. MIRENA [Suspect]
     Indication: CONTRACEPTION
     Route: 015
     Dates: start: 20060525, end: 20070212

REACTIONS (9)
  - ALOPECIA [None]
  - AMENORRHOEA [None]
  - AMNESIA [None]
  - ANXIETY [None]
  - BACK PAIN [None]
  - CONFUSIONAL STATE [None]
  - DEPRESSION [None]
  - GOITRE [None]
  - WEIGHT INCREASED [None]
